FAERS Safety Report 11129120 (Version 3)
Quarter: 2015Q2

REPORT INFORMATION
  Report Type: Spontaneous
  Country: US (occurrence: US)
  Receive Date: 20150521
  Receipt Date: 20150629
  Transmission Date: 20150821
  Serious: Yes (Hospitalization)
  Sender: FDA-Public Use
  Company Number: US-PFIZER INC-2015167884

PATIENT
  Age: 46 Year
  Sex: Male
  Weight: 54 kg

DRUGS (3)
  1. DILANTIN [Suspect]
     Active Substance: PHENYTOIN
     Indication: GENERALISED TONIC-CLONIC SEIZURE
     Dosage: 100 MG, 3X/DAY
     Dates: start: 199807, end: 201407
  2. CENTRUM SILVER [Concomitant]
     Active Substance: VITAMINS
     Dosage: UNK, 1X/DAY
     Dates: start: 2010
  3. DILANTIN [Suspect]
     Active Substance: PHENYTOIN
     Indication: SEIZURE

REACTIONS (3)
  - Seizure [Recovered/Resolved]
  - Condition aggravated [Recovered/Resolved]
  - Speech disorder [Recovered/Resolved]

NARRATIVE: CASE EVENT DATE: 20150305
